FAERS Safety Report 9508371 (Version 1)
Quarter: 2013Q1

REPORT INFORMATION
  Report Type: Spontaneous
  Country: US (occurrence: None)
  Receive Date: 20130305
  Receipt Date: 20130305
  Transmission Date: 20140127
  Serious: Yes (Other)
  Sender: FDA-Public Use
  Company Number: 163-21880-11110438

PATIENT
  Age: 64 Year
  Sex: Female

DRUGS (18)
  1. REVLIMID [Suspect]
     Indication: 5Q MINUS SYNDROME
     Dosage: CAPSULE, 5 MG, QD AND QOD, PO
     Dates: start: 20110811
  2. Z-PAK (AZITHROMYCIN) [Concomitant]
  3. NEUPOGEN (FILGRASTIM) [Concomitant]
  4. ENTOCORT (BUDESONIDE) [Concomitant]
  5. ALBUTEROL (SALBUTAMOL) [Concomitant]
  6. ASPIRIN (ACETYLSALICYLIC ACID) [Concomitant]
  7. CELEXA (CITALOPRAM HYDROBROMIDE) [Concomitant]
  8. B12 (CYANOCOBALAMIN) [Concomitant]
  9. DIPHENOXYLATE/ATROPINE (LOMOTIL) [Concomitant]
  10. LEVOTHYROXINE [Concomitant]
  11. MAGNESIUM OXIDE [Concomitant]
  12. POTASSIUM CHLORIDE [Concomitant]
  13. PROMETHAZINE [Concomitant]
  14. SIMVASTATIN [Concomitant]
  15. TYLENOL (PARACETAMOL) [Concomitant]
  16. ZANTAC (RANITIDINE HYDROCHLORIDE) [Concomitant]
  17. VITAMIN D (ERGOCALCIFEROL) [Concomitant]
  18. DECITABINE [Concomitant]

REACTIONS (5)
  - Neutrophil count decreased [None]
  - White blood cell count decreased [None]
  - Rash pruritic [None]
  - Dry skin [None]
  - Rash erythematous [None]
